FAERS Safety Report 21817549 (Version 6)
Quarter: 2024Q2

REPORT INFORMATION
  Report Type: Spontaneous
  Country: US (occurrence: US)
  Receive Date: 20230104
  Receipt Date: 20240415
  Transmission Date: 20240716
  Serious: No
  Sender: FDA-Public Use
  Company Number: US-PFIZER INC-202201399284

PATIENT
  Age: 84 Year
  Sex: Male
  Weight: 72.57 kg

DRUGS (10)
  1. VYNDAMAX [Suspect]
     Active Substance: TAFAMIDIS
     Indication: Cardiac amyloidosis
     Dosage: 61 MG, 1X/DAY
     Dates: start: 2021, end: 202212
  2. VYNDAMAX [Suspect]
     Active Substance: TAFAMIDIS
     Indication: Amyloidosis
     Dosage: 61 MG, 1X/DAY
     Route: 048
  3. VYNDAMAX [Suspect]
     Active Substance: TAFAMIDIS
     Dosage: 61 MG, 1X/DAY
     Route: 048
  4. PRADAXA [Concomitant]
     Active Substance: DABIGATRAN ETEXILATE MESYLATE
     Indication: Anticoagulant therapy
     Dosage: 75 MG, 2X/DAY
     Route: 048
  5. METOPROLOL [Concomitant]
     Active Substance: METOPROLOL
     Dosage: 75 MG
  6. METOPROLOL [Concomitant]
     Active Substance: METOPROLOL
     Dosage: UNKNOWN STRENGTH OF TABLET, ONE TABLET TWICE A DAY
  7. LOSARTAN [Concomitant]
     Active Substance: LOSARTAN
     Dosage: 25 MG
  8. LOSARTAN [Concomitant]
     Active Substance: LOSARTAN
     Dosage: 12.5 MG, 1X/DAY
  9. CLOPIDOGREL [Concomitant]
     Active Substance: CLOPIDOGREL BISULFATE
     Indication: Myocardial infarction
     Dosage: 75 MG, 1X/DAY
  10. CLOPIDOGREL [Concomitant]
     Active Substance: CLOPIDOGREL BISULFATE
     Indication: Cerebrovascular accident

REACTIONS (5)
  - COVID-19 [Unknown]
  - Malaise [Unknown]
  - Dyspnoea [Unknown]
  - Anxiety [Unknown]
  - Expired product administered [Unknown]

NARRATIVE: CASE EVENT DATE: 20220801
